FAERS Safety Report 6935287-4 (Version None)
Quarter: 2010Q3

REPORT INFORMATION
  Report Type: 
  Country: None (occurrence: None)
  Receive Date: 20100822
  Receipt Date: 20100716
  Transmission Date: 20110219
  Serious: Yes (Death, Hospitalization, Other)
  Sender: FDA-Public Use
  Company Number: PHEH2007US14841

PATIENT
  Sex: Female
  Weight: 81.633 kg

DRUGS (49)
  1. AREDIA [Suspect]
     Indication: HYPERCALCAEMIA OF MALIGNANCY
     Dosage: 90MG
     Dates: start: 20010727
  2. ZOMETA [Suspect]
  3. CHEMOTHERAPEUTICS NOS [Concomitant]
  4. RADIATION THERAPY [Concomitant]
  5. COUMADIN [Concomitant]
     Dosage: 1 MG, UNK
  6. PRILOSEC [Concomitant]
     Dosage: 20 MG, QD
  7. PENICILLIN ^GRUNENTHAL^ [Concomitant]
     Dosage: 500 MG, QD
  8. CLINDAMYCIN [Concomitant]
     Dosage: 300 MG, TID
  9. MULTIVITAMIN ^LAPPE^ [Concomitant]
     Dosage: UNK
  10. CALCIUM [Concomitant]
  11. VITAMIN D [Concomitant]
  12. VITAMIN B-12 [Concomitant]
  13. ASCORBIC ACID [Concomitant]
  14. HYDROCHLOROTHIAZIDE [Concomitant]
  15. SIMVASTATIN [Concomitant]
     Dosage: 40 MG, QD
  16. PROCRIT                            /00909301/ [Concomitant]
  17. HERCEPTIN [Concomitant]
     Dosage: 550 MG, UNK
     Dates: start: 20010801, end: 20011201
  18. HERCEPTIN [Concomitant]
     Dosage: 550 MG, UNK
     Dates: start: 20030601
  19. TAXOTERE [Concomitant]
     Dosage: UNK
     Dates: start: 20010801, end: 20011201
  20. CARBOPLATIN [Concomitant]
     Dosage: UNK
     Dates: start: 20030601
  21. DILAUDID [Concomitant]
  22. DECADRON                                /NET/ [Concomitant]
  23. ZANTAC [Concomitant]
  24. DURAGESIC-100 [Concomitant]
     Dosage: 50MCG/HR
     Route: 062
     Dates: start: 20010727
  25. PREDNISONE [Concomitant]
     Dosage: UNK
     Route: 048
  26. PREMARIN [Concomitant]
     Dosage: 0.625MG QD
     Route: 048
     Dates: start: 19980101
  27. KEFLEX [Concomitant]
     Dosage: 500 MG, UNK
  28. TRIMOX [Concomitant]
     Dosage: 500 MG, UNK
  29. NAVELBINE [Concomitant]
     Dosage: UNK
     Dates: start: 20020401, end: 20021001
  30. METHYLIN [Concomitant]
     Dosage: 5 MG, UNK
     Route: 048
     Dates: start: 20040510
  31. MARINOL [Concomitant]
     Dosage: 5 MG, UNK
     Dates: start: 20040510
  32. ATIVAN [Concomitant]
     Dosage: 1 MG, UNK
     Route: 048
     Dates: start: 20040525
  33. NITROGLYCERIN [Concomitant]
     Dosage: 0.4 MG, PRN
     Route: 060
     Dates: start: 20051015
  34. ECONAZOLE NITRATE [Concomitant]
     Dosage: 1 %, UNK
     Route: 061
     Dates: start: 20050203
  35. ZITHROMAX [Concomitant]
     Dosage: 250 MG, QD
     Route: 048
     Dates: start: 20051118
  36. LEVAQUIN [Concomitant]
     Dosage: 500 MG, QD
     Route: 048
     Dates: start: 20051209
  37. TRIAMTERENE AND HYDROCHLOROTHIAZID ^HARRIS^ [Concomitant]
     Dosage: 37.5/25 MG
  38. LOVASTATIN [Concomitant]
  39. NORVASC [Concomitant]
     Dosage: 5 MG, UNK
  40. MS CONTIN [Concomitant]
  41. RITALIN [Concomitant]
  42. LASIX [Concomitant]
     Dosage: 40 MG, UNK
  43. POTASSIUM CHLORIDE [Concomitant]
  44. ASPIRIN [Concomitant]
     Dosage: 81 MG, QD
  45. TOPROL-XL [Concomitant]
  46. WELLBUTRIN [Concomitant]
  47. PHENYTOIN [Concomitant]
  48. ZOLOFT [Concomitant]
  49. LOVENOX [Concomitant]

REACTIONS (100)
  - ABDOMINAL PAIN [None]
  - ACTINOMYCOSIS [None]
  - ACTIVATED PARTIAL THROMBOPLASTIN TIME PROLONGED [None]
  - ACTIVITIES OF DAILY LIVING IMPAIRED [None]
  - ANAEMIA [None]
  - ANGINA PECTORIS [None]
  - AORTIC STENOSIS [None]
  - ARTERIOSCLEROSIS [None]
  - ASTHENIA [None]
  - BACK PAIN [None]
  - BEDRIDDEN [None]
  - BONE DENSITY DECREASED [None]
  - BONE DISORDER [None]
  - BRAIN NEOPLASM [None]
  - BREAST CANCER METASTATIC [None]
  - BREATH SOUNDS ABNORMAL [None]
  - CAROTID BRUIT [None]
  - CENTRAL VENOUS CATHETERISATION [None]
  - CEREBRAL ISCHAEMIA [None]
  - CERUMEN IMPACTION [None]
  - CERVICAL SPINAL STENOSIS [None]
  - CHRONIC OBSTRUCTIVE PULMONARY DISEASE [None]
  - CHRONIC SINUSITIS [None]
  - CONTUSION [None]
  - CONVULSION [None]
  - DEBRIDEMENT [None]
  - DECREASED APPETITE [None]
  - DEEP VEIN THROMBOSIS [None]
  - DEFORMITY [None]
  - DEMENTIA [None]
  - DENTAL OPERATION [None]
  - DEPRESSED LEVEL OF CONSCIOUSNESS [None]
  - DEPRESSION [None]
  - DISORIENTATION [None]
  - DISTURBANCE IN ATTENTION [None]
  - DIVERTICULITIS [None]
  - DYSPHAGIA [None]
  - EXOSTOSIS [None]
  - FAECAL INCONTINENCE [None]
  - FALL [None]
  - FEMORAL ARTERIAL STENOSIS [None]
  - FUNGAL INFECTION [None]
  - FUNGAL SKIN INFECTION [None]
  - GASTROINTESTINAL HAEMORRHAGE [None]
  - GINGIVAL BLEEDING [None]
  - GINGIVAL ULCERATION [None]
  - GROIN PAIN [None]
  - HAEMOPTYSIS [None]
  - HEADACHE [None]
  - HYPERTENSION [None]
  - INFECTION [None]
  - INTERVERTEBRAL DISC PROTRUSION [None]
  - JAW OPERATION [None]
  - JOINT INJURY [None]
  - LEFT ATRIAL DILATATION [None]
  - LETHARGY [None]
  - LUMBAR SPINAL STENOSIS [None]
  - LUMBAR VERTEBRAL FRACTURE [None]
  - MEMORY IMPAIRMENT [None]
  - METASTASES TO BONE [None]
  - METASTASES TO CENTRAL NERVOUS SYSTEM [None]
  - METASTASES TO LUNG [None]
  - MITRAL VALVE INCOMPETENCE [None]
  - MOUTH HAEMORRHAGE [None]
  - MUCOSAL HAEMORRHAGE [None]
  - NAUSEA [None]
  - NECK PAIN [None]
  - NEOPLASM RECURRENCE [None]
  - NERVE ROOT LESION [None]
  - NERVOUS SYSTEM DISORDER [None]
  - OESOPHAGEAL SPASM [None]
  - OSTEITIS [None]
  - OSTEOMYELITIS [None]
  - OSTEONECROSIS OF JAW [None]
  - PAIN [None]
  - PAIN IN EXTREMITY [None]
  - PAIN IN JAW [None]
  - PANCYTOPENIA [None]
  - PRESBYOESOPHAGUS [None]
  - PRIMARY SEQUESTRUM [None]
  - PROCTALGIA [None]
  - PULMONARY EMBOLISM [None]
  - RADIATION INJURY [None]
  - RESPIRATORY DISTRESS [None]
  - RIB FRACTURE [None]
  - SINUS DISORDER [None]
  - SINUS OPERATION [None]
  - SINUS POLYP [None]
  - SINUSITIS FUNGAL [None]
  - SPEECH DISORDER [None]
  - SPINAL COMPRESSION FRACTURE [None]
  - SPONDYLOLISTHESIS [None]
  - SWELLING [None]
  - TOOTH ABSCESS [None]
  - TOOTH EXTRACTION [None]
  - URINARY INCONTINENCE [None]
  - URINARY RETENTION [None]
  - VENTRICULAR HYPERTROPHY [None]
  - VOMITING [None]
  - WEIGHT DECREASED [None]
